FAERS Safety Report 16048859 (Version 1)
Quarter: 2019Q1

REPORT INFORMATION
  Report Type: Spontaneous
  Country: US (occurrence: US)
  Receive Date: 20190307
  Receipt Date: 20190307
  Transmission Date: 20190418
  Serious: Yes (Life-Threatening)
  Sender: FDA-Public Use
  Company Number: PHEH2019US009878

PATIENT
  Sex: Female

DRUGS (1)
  1. GLEEVEC [Suspect]
     Active Substance: IMATINIB MESYLATE
     Indication: PRODUCT USED FOR UNKNOWN INDICATION
     Dosage: 400 MG, QD
     Route: 048
     Dates: start: 20180319, end: 20180427

REACTIONS (5)
  - Hypersensitivity [Unknown]
  - Ill-defined disorder [Unknown]
  - Dyspnoea [Unknown]
  - Throat irritation [Unknown]
  - Swelling face [Unknown]
